FAERS Safety Report 18871785 (Version 1)
Quarter: 2021Q1

REPORT INFORMATION
  Report Type: Spontaneous
  Country: US (occurrence: US)
  Receive Date: 20210210
  Receipt Date: 20210210
  Transmission Date: 20210420
  Serious: Yes (Hospitalization, Other)
  Sender: FDA-Public Use
  Company Number: US-AMGEN-USASP2021018339

PATIENT

DRUGS (1)
  1. PROLIA [Suspect]
     Active Substance: DENOSUMAB
     Indication: OSTEOPOROSIS
     Dosage: UNK
     Route: 065

REACTIONS (9)
  - Respiratory tract infection [Unknown]
  - Infection [Unknown]
  - Labyrinthitis [Unknown]
  - Diverticulitis [Unknown]
  - Urinary tract infection [Unknown]
  - Gastroenteritis [Unknown]
  - Cellulitis [Unknown]
  - Osteomyelitis [Unknown]
  - Endocarditis [Unknown]
